FAERS Safety Report 7598792-6 (Version None)
Quarter: 2011Q3

REPORT INFORMATION
  Report Type: 
  Country: None (occurrence: None)
  Receive Date: 20110711
  Receipt Date: 20110629
  Transmission Date: 20111222
  Serious: No
  Sender: FDA-Public Use
  Company Number: US-BIOGENIDEC-2011BI018027

PATIENT
  Sex: Female

DRUGS (2)
  1. AVONEX [Concomitant]
     Indication: MULTIPLE SCLEROSIS
     Route: 030
  2. TYSABRI [Suspect]
     Indication: MULTIPLE SCLEROSIS
     Route: 042
     Dates: start: 20110419

REACTIONS (8)
  - DIZZINESS [None]
  - INSOMNIA [None]
  - PARAESTHESIA [None]
  - FATIGUE [None]
  - PAIN [None]
  - NAUSEA [None]
  - EYE PAIN [None]
  - HEMIPARESIS [None]
